FAERS Safety Report 6063797-3 (Version None)
Quarter: 2009Q1

REPORT INFORMATION
  Report Type: 
  Country: None (occurrence: None)
  Receive Date: 20090204
  Receipt Date: 20090121
  Transmission Date: 20090719
  Serious: Yes (Death)
  Sender: FDA-Public Use
  Company Number: US-JNJFOC-20090107008

PATIENT
  Sex: Male
  Weight: 71.67 kg

DRUGS (7)
  1. FENTANYL-75 [Suspect]
     Indication: DRUG USE FOR UNKNOWN INDICATION
     Route: 062
  2. CODEINE [Concomitant]
  3. LORAZEPAM [Concomitant]
  4. LIDOCAINE [Concomitant]
  5. OPIATES [Concomitant]
  6. MORPHINE [Concomitant]
  7. ETHANOL [Concomitant]

REACTIONS (2)
  - DRUG LEVEL INCREASED [None]
  - THERMAL BURN [None]
